FAERS Safety Report 18423692 (Version 2)
Quarter: 2020Q4

REPORT INFORMATION
  Report Type: Spontaneous
  Country: KW (occurrence: KW)
  Receive Date: 20201024
  Receipt Date: 20201118
  Transmission Date: 20210114
  Serious: Yes (Other)
  Sender: FDA-Public Use
  Company Number: KW-AMGEN-KWTSP2020172638

PATIENT
  Age: 55 Year
  Sex: Female
  Weight: 60 kg

DRUGS (5)
  1. METHOTREXATE. [Concomitant]
     Active Substance: METHOTREXATE
     Indication: RHEUMATOID ARTHRITIS
     Dosage: 4 DOSAGE FORM, QWK
     Dates: start: 20180202
  2. ENBREL [Suspect]
     Active Substance: ETANERCEPT
     Indication: RHEUMATOID ARTHRITIS
     Dosage: 50 MILLIGRAM, QWK
     Route: 058
     Dates: start: 20180205, end: 20201012
  3. VITAMIN C [Concomitant]
     Active Substance: ASCORBIC ACID
     Indication: IMMUNE SYSTEM DISORDER
     Dosage: UNK, QD
     Dates: start: 20180202
  4. FOLIC ACID. [Concomitant]
     Active Substance: FOLIC ACID
     Indication: SUPPLEMENTATION THERAPY
     Dosage: 5 MG, 1X/DAY (SKIP ON METHOTREXATE DAY)
     Dates: start: 20180202
  5. VIT E [TOCOPHERYL ACETATE] [Concomitant]
     Indication: IMMUNE SYSTEM DISORDER
     Dosage: UNK, QD
     Dates: start: 20180202

REACTIONS (2)
  - COVID-19 [Recovered/Resolved]
  - Pyrexia [Recovered/Resolved]

NARRATIVE: CASE EVENT DATE: 20201012
